FAERS Safety Report 25748050 (Version 1)
Quarter: 2025Q3

REPORT INFORMATION
  Report Type: Report from Study
  Country: US (occurrence: US)
  Receive Date: 20250901
  Receipt Date: 20250901
  Transmission Date: 20251021
  Serious: Yes (Death)
  Sender: ABBVIE
  Company Number: US-ABBVIE-6441091

PATIENT
  Age: 94 Year
  Sex: Female

DRUGS (1)
  1. BOTOX [Suspect]
     Active Substance: ONABOTULINUMTOXINA
     Indication: Migraine without aura
     Route: 030
     Dates: start: 20250623, end: 20250623

REACTIONS (1)
  - Death [Fatal]

NARRATIVE: CASE EVENT DATE: 20250623
